FAERS Safety Report 7807981-4 (Version None)
Quarter: 2011Q4

REPORT INFORMATION
  Report Type: 
  Country: None (occurrence: None)
  Receive Date: 20111011
  Receipt Date: 20111011
  Transmission Date: 20120403
  Serious: Yes (Life-Threatening, Hospitalization, Disabling, Other)
  Sender: FDA-Public Use
  Company Number: None

PATIENT
  Age: 26 Year
  Sex: Female
  Weight: 45.359 kg

DRUGS (1)
  1. PRISTIQ [Suspect]
     Indication: ANXIETY
     Dosage: 100MG
     Route: 048
     Dates: start: 20100115, end: 20110925

REACTIONS (16)
  - DRUG WITHDRAWAL SYNDROME [None]
  - FEAR [None]
  - PARAESTHESIA [None]
  - LOSS OF CONSCIOUSNESS [None]
  - UNEVALUABLE EVENT [None]
  - DRUG INEFFECTIVE [None]
  - ANXIETY [None]
  - BLINDNESS [None]
  - SUICIDAL IDEATION [None]
  - QUALITY OF LIFE DECREASED [None]
  - CHEST PAIN [None]
  - CRYING [None]
  - DRUG DEPENDENCE [None]
  - RESPIRATORY DISORDER [None]
  - PAIN [None]
  - CONVULSION [None]
